FAERS Safety Report 17904903 (Version 1)
Quarter: 2020Q2

REPORT INFORMATION
  Report Type: Spontaneous
  Country: US (occurrence: US)
  Receive Date: 20200616
  Receipt Date: 20200616
  Transmission Date: 20200714
  Serious: No
  Sender: FDA-Public Use
  Company Number: US-ROCHE-2308057

PATIENT
  Age: 38 Year
  Sex: Female

DRUGS (2)
  1. ACTEMRA [Suspect]
     Active Substance: TOCILIZUMAB
     Indication: RHEUMATOID ARTHRITIS
     Route: 042
     Dates: start: 20190228
  2. ACTEMRA [Suspect]
     Active Substance: TOCILIZUMAB
     Dosage: 20MG/M L ~ 4ML SDV
     Route: 042
     Dates: start: 20190225, end: 20191125

REACTIONS (4)
  - Drug ineffective [Unknown]
  - Sinusitis [Unknown]
  - Sinus headache [Unknown]
  - Sinus congestion [Unknown]

NARRATIVE: CASE EVENT DATE: 20190225
